FAERS Safety Report 5712065-5 (Version None)
Quarter: 2008Q2

REPORT INFORMATION
  Report Type: 
  Country: None (occurrence: None)
  Receive Date: 20080417
  Receipt Date: 20080402
  Transmission Date: 20081010
  Serious: Yes (Hospitalization)
  Sender: FDA-Public Use
  Company Number: 8031574

PATIENT
  Age: 60 Year
  Sex: Female

DRUGS (2)
  1. KEPPRA [Suspect]
     Indication: STATUS EPILEPTICUS
     Dosage: IV
     Route: 042
  2. KEPPRA [Suspect]
     Indication: STATUS EPILEPTICUS
     Dosage: PO
     Route: 048

REACTIONS (2)
  - STATUS EPILEPTICUS [None]
  - THROMBOCYTOPENIA [None]
